FAERS Safety Report 12439721 (Version 6)
Quarter: 2016Q3

REPORT INFORMATION
  Report Type: Spontaneous
  Country: CA (occurrence: CA)
  Receive Date: 20160606
  Receipt Date: 20160825
  Transmission Date: 20161109
  Serious: Yes (Disabling, Other)
  Sender: FDA-Public Use
  Company Number: CA-PFIZER INC-2016282915

PATIENT
  Age: 59 Year
  Sex: Male

DRUGS (3)
  1. XELJANZ [Suspect]
     Active Substance: TOFACITINIB CITRATE
     Dosage: 5 MG, 2X/DAY
     Route: 048
     Dates: start: 20160707, end: 20160720
  2. XELJANZ [Suspect]
     Active Substance: TOFACITINIB CITRATE
     Indication: RHEUMATOID ARTHRITIS
     Dosage: 5 MG, 2X/DAY
     Route: 048
     Dates: start: 20160525, end: 2016
  3. XELJANZ [Suspect]
     Active Substance: TOFACITINIB CITRATE
     Dosage: 5 MG, 1X/DAY
     Route: 048
     Dates: start: 2016, end: 20160706

REACTIONS (9)
  - Diarrhoea [Recovering/Resolving]
  - Pain [Unknown]
  - Oral candidiasis [Not Recovered/Not Resolved]
  - Tongue discolouration [Unknown]
  - Constipation [Not Recovered/Not Resolved]
  - Headache [Recovering/Resolving]
  - Back injury [Not Recovered/Not Resolved]
  - Drug effect incomplete [Unknown]
  - Oral herpes [Not Recovered/Not Resolved]

NARRATIVE: CASE EVENT DATE: 2016
